FAERS Safety Report 16204481 (Version 1)
Quarter: 2019Q2

REPORT INFORMATION
  Report Type: Report from Study
  Country: US (occurrence: US)
  Receive Date: 20190416
  Receipt Date: 20190416
  Transmission Date: 20190711
  Serious: Yes (Other)
  Sender: FDA-Public Use
  Company Number: US-SHIRE-US201912059

PATIENT
  Sex: Female

DRUGS (3)
  1. BENADRYL [Concomitant]
     Active Substance: DIPHENHYDRAMINE HYDROCHLORIDE
     Indication: PRODUCT USED FOR UNKNOWN INDICATION
  2. GAMMAGARD LIQUID [Suspect]
     Active Substance: HUMAN IMMUNOGLOBULIN G
     Indication: IMMUNODEFICIENCY COMMON VARIABLE
     Dosage: 30 GRAM, 1X A MONTH
     Route: 042
  3. HUMAN IMMUNOGLOBULIN; HYALURONIDASE [Suspect]
     Active Substance: HUMAN IMMUNOGLOBULIN G\HYALURONIDASE RECOMBINANT HUMAN
     Indication: IMMUNODEFICIENCY COMMON VARIABLE
     Dosage: UNK
     Route: 065
     Dates: start: 201505

REACTIONS (11)
  - Immunoglobulins decreased [Unknown]
  - Bartholin^s cyst [Unknown]
  - Pain in extremity [Unknown]
  - Pelvic pain [Unknown]
  - Condition aggravated [Unknown]
  - Infection [Unknown]
  - Musculoskeletal pain [Unknown]
  - Neck pain [Unknown]
  - Subcutaneous drug absorption impaired [Unknown]
  - Inappropriate schedule of product administration [Unknown]
  - Back pain [Unknown]
